FAERS Safety Report 7090983-6 (Version None)
Quarter: 2010Q4

REPORT INFORMATION
  Report Type: 
  Country: None (occurrence: None)
  Receive Date: 20101109
  Receipt Date: 20100903
  Transmission Date: 20110411
  Serious: Yes (Other)
  Sender: FDA-Public Use
  Company Number: US-TYCO HEALTHCARE/MALLINCKRODT-T201001951

PATIENT
  Sex: Female

DRUGS (3)
  1. OPTIMARK [Suspect]
     Dosage: UNK UNK, SINGLE
     Dates: start: 20070801, end: 20070801
  2. OMNISCAN [Suspect]
     Dosage: UNK UNK, SINGLE
     Dates: start: 20041221, end: 20041221
  3. OMNISCAN [Suspect]
     Dosage: UNK UNK, SINGLE
     Dates: start: 20051214, end: 20051214

REACTIONS (1)
  - NEPHROGENIC SYSTEMIC FIBROSIS [None]
